FAERS Safety Report 23327779 (Version 1)
Quarter: 2023Q4

REPORT INFORMATION
  Report Type: Spontaneous
  Country: IL (occurrence: IL)
  Receive Date: 20231221
  Receipt Date: 20231221
  Transmission Date: 20240109
  Serious: Yes (Other)
  Sender: FDA-Public Use
  Company Number: IL-002147023-NVSC2023IL268095

PATIENT
  Age: 83 Year
  Sex: Female

DRUGS (5)
  1. FEMARA [Suspect]
     Active Substance: LETROZOLE
     Indication: Ovarian cancer
     Route: 065
  2. KISQALI [Suspect]
     Active Substance: RIBOCICLIB
     Indication: Product used for unknown indication
     Dosage: 600 MG
     Route: 065
     Dates: start: 202211
  3. KISQALI [Suspect]
     Active Substance: RIBOCICLIB
     Dosage: 400 MG
     Route: 065
  4. FULVESTRANT [Suspect]
     Active Substance: FULVESTRANT
     Indication: Product used for unknown indication
     Dosage: 600 MG
     Route: 065
     Dates: start: 202211
  5. FULVESTRANT [Suspect]
     Active Substance: FULVESTRANT
     Dosage: 400 MG
     Route: 065

REACTIONS (7)
  - Breast cancer recurrent [Unknown]
  - Invasive ductal breast carcinoma [Unknown]
  - Leukopenia [Unknown]
  - Neutropenia [Unknown]
  - Asthenia [Unknown]
  - BRCA2 gene mutation [Unknown]
  - Neoplasm progression [Unknown]

NARRATIVE: CASE EVENT DATE: 20230601
